FAERS Safety Report 14267547 (Version 1)
Quarter: 2017Q4

REPORT INFORMATION
  Report Type: Spontaneous
  Country: US (occurrence: US)
  Receive Date: 20171211
  Receipt Date: 20171211
  Transmission Date: 20180321
  Serious: Yes (Other)
  Sender: FDA-Public Use
  Company Number: US-AUROBINDO-AUR-APU-2017-40248

PATIENT
  Sex: Female

DRUGS (4)
  1. MIRTAZAPINE TABLETS 30 MG [Suspect]
     Active Substance: MIRTAZAPINE
     Indication: ANXIETY
  2. MIRTAZAPINE TABLETS 30 MG [Suspect]
     Active Substance: MIRTAZAPINE
     Indication: DEPRESSION
  3. TEMAZEPAM. [Concomitant]
     Active Substance: TEMAZEPAM
     Indication: PRODUCT USED FOR UNKNOWN INDICATION
     Dosage: 15 MG, UNK
     Route: 065
  4. MIRTAZAPINE TABLETS 30 MG [Suspect]
     Active Substance: MIRTAZAPINE
     Indication: INSOMNIA
     Dosage: 1 DF, AT NIGHT
     Route: 065
     Dates: start: 201408, end: 20170803

REACTIONS (2)
  - Weight increased [Recovering/Resolving]
  - Product quality issue [None]
